FAERS Safety Report 10811147 (Version 1)
Quarter: 2015Q1

REPORT INFORMATION
  Report Type: Spontaneous
  Country: JP (occurrence: None)
  Receive Date: 20150212
  Receipt Date: 20150212
  Transmission Date: 20150721
  Serious: Yes (Other)
  Sender: FDA-Public Use
  Company Number: 2015FE00354

PATIENT
  Age: 87 Year
  Sex: Male

DRUGS (5)
  1. GONAX [Suspect]
     Active Substance: DEGARELIX
     Indication: PROSTATE CANCER
     Route: 058
  2. EVIPROSTAT /00833501/ (SERENOA REPENS) [Concomitant]
  3. ADETPHOS (ADENOSINE TRIPHOSPHATE, DISODIUM SALT) [Concomitant]
  4. MERISLON (BETAHISTINE MESILATE) [Concomitant]
  5. METHYCOBAL (MECOBALAMIN) [Concomitant]

REACTIONS (1)
  - Anaphylactic reaction [None]

NARRATIVE: CASE EVENT DATE: 20141203
